FAERS Safety Report 14526239 (Version 2)
Quarter: 2018Q1

REPORT INFORMATION
  Report Type: Spontaneous
  Country: US (occurrence: US)
  Receive Date: 20180213
  Receipt Date: 20180215
  Transmission Date: 20180509
  Serious: Yes (Other)
  Sender: FDA-Public Use
  Company Number: US-AMGEN-USASP2018019238

PATIENT
  Age: 78 Year
  Sex: Male

DRUGS (12)
  1. EPOGEN [Suspect]
     Active Substance: ERYTHROPOIETIN
     Indication: REFRACTORY CYTOPENIA WITH MULTILINEAGE DYSPLASIA
     Dosage: 40000 UNIT, QWK
     Route: 065
     Dates: start: 200901
  2. DARBEPOETIN ALFA [Suspect]
     Active Substance: DARBEPOETIN ALFA
     Dosage: 500 MG, Q2WK
     Route: 065
     Dates: start: 20170418
  3. DARBEPOETIN ALFA [Suspect]
     Active Substance: DARBEPOETIN ALFA
     Dosage: 500 MG, Q2WK
     Route: 065
     Dates: start: 20170530
  4. RIGOSERTIB [Suspect]
     Active Substance: RIGOSERTIB
     Dosage: 70 MG, BID (FOR 14 DAYS OF THE 21-DAY CYCLE)
     Route: 065
     Dates: start: 201103, end: 201310
  5. DARBEPOETIN ALFA [Suspect]
     Active Substance: DARBEPOETIN ALFA
     Indication: REFRACTORY CYTOPENIA WITH MULTILINEAGE DYSPLASIA
     Dosage: 500 MG, Q2WK
     Route: 065
     Dates: start: 201103
  6. DARBEPOETIN ALFA [Suspect]
     Active Substance: DARBEPOETIN ALFA
     Dosage: 500 MG, Q2WK
     Route: 065
     Dates: start: 20170404
  7. DARBEPOETIN ALFA [Suspect]
     Active Substance: DARBEPOETIN ALFA
     Dosage: 500 MG, Q2WK
     Route: 065
     Dates: start: 20170516
  8. DARBEPOETIN ALFA [Suspect]
     Active Substance: DARBEPOETIN ALFA
     Dosage: 500 MG, Q2WK
     Route: 065
     Dates: start: 20170705
  9. EPOGEN [Suspect]
     Active Substance: ERYTHROPOIETIN
     Dosage: 60000 UNIT, QWK
     Route: 065
  10. DARBEPOETIN ALFA [Suspect]
     Active Substance: DARBEPOETIN ALFA
     Dosage: 500 MG, Q2WK
     Route: 065
     Dates: start: 20170502
  11. DARBEPOETIN ALFA [Suspect]
     Active Substance: DARBEPOETIN ALFA
     Dosage: 500 MG, Q2WK
     Route: 065
     Dates: start: 20170613
  12. RIGOSERTIB [Suspect]
     Active Substance: RIGOSERTIB
     Indication: REFRACTORY CYTOPENIA WITH MULTILINEAGE DYSPLASIA
     Dosage: 560 MG, BID (280 MG CAPS, 2 CAPS FOR 14 DAYS OF THE 21-DAY CYCLE)
     Route: 065
     Dates: start: 201103, end: 201310

REACTIONS (4)
  - Off label use [Unknown]
  - Dysuria [Unknown]
  - Therapeutic response decreased [Unknown]
  - Transfusion [Unknown]

NARRATIVE: CASE EVENT DATE: 200901
